FAERS Safety Report 5342465-7 (Version None)
Quarter: 2007Q2

REPORT INFORMATION
  Report Type: 
  Country: None (occurrence: None)
  Receive Date: 20070601
  Receipt Date: 20070531
  Transmission Date: 20071010
  Serious: Yes (Death)
  Sender: FDA-Public Use
  Company Number: US-ASTRAZENECA-2006UW10719

PATIENT
  Sex: Male
  Weight: 96.8 kg

DRUGS (8)
  1. SEROQUEL [Suspect]
     Indication: ANXIETY
     Route: 048
     Dates: start: 20050801
  2. SEROQUEL [Suspect]
     Indication: INSOMNIA
     Route: 048
     Dates: start: 20050801
  3. CLOZARIL [Concomitant]
  4. XANAX [Concomitant]
  5. CYMBALTA [Concomitant]
  6. LEXAPRO [Concomitant]
  7. VALIUM [Concomitant]
  8. METHADONE HCL [Concomitant]
     Dates: start: 20040101, end: 20060101

REACTIONS (2)
  - DEATH [None]
  - DIABETES MELLITUS [None]
